FAERS Safety Report 12429662 (Version 1)
Quarter: 2016Q2

REPORT INFORMATION
  Report Type: Spontaneous
  Country: FR (occurrence: FR)
  Receive Date: 20160602
  Receipt Date: 20160602
  Transmission Date: 20160815
  Serious: Yes (Hospitalization)
  Sender: FDA-Public Use
  Company Number: FR-SA-2016SA104117

PATIENT
  Age: 93 Year
  Sex: Female

DRUGS (7)
  1. APROVEL [Suspect]
     Active Substance: IRBESARTAN
     Indication: WRONG DRUG ADMINISTERED
     Route: 048
     Dates: start: 20160301, end: 20160301
  2. KEPPRA [Suspect]
     Active Substance: LEVETIRACETAM
     Indication: WRONG DRUG ADMINISTERED
     Route: 048
     Dates: start: 20160301, end: 20160301
  3. SECTRAL [Suspect]
     Active Substance: ACEBUTOLOL HYDROCHLORIDE
     Indication: WRONG DRUG ADMINISTERED
     Route: 048
     Dates: start: 20160301, end: 20160301
  4. RISPERDAL [Suspect]
     Active Substance: RISPERIDONE
     Indication: WRONG DRUG ADMINISTERED
     Route: 048
     Dates: start: 20160301, end: 20160301
  5. LIPANTHYL [Suspect]
     Active Substance: FENOFIBRATE
     Indication: WRONG DRUG ADMINISTERED
     Route: 048
     Dates: start: 20160301, end: 20160301
  6. XATRAL LP [Suspect]
     Active Substance: ALFUZOSIN
     Indication: WRONG DRUG ADMINISTERED
     Route: 048
     Dates: start: 20160301, end: 20160301
  7. LAMICTAL [Suspect]
     Active Substance: LAMOTRIGINE
     Indication: WRONG DRUG ADMINISTERED
     Route: 048
     Dates: start: 20160301, end: 20160301

REACTIONS (2)
  - Wrong drug administered [Unknown]
  - Somnolence [Recovering/Resolving]

NARRATIVE: CASE EVENT DATE: 20160302
